FAERS Safety Report 11126955 (Version 2)
Quarter: 2015Q2

REPORT INFORMATION
  Report Type: Spontaneous
  Country: GB (occurrence: GB)
  Receive Date: 20150521
  Receipt Date: 20150612
  Transmission Date: 20150821
  Serious: Yes (Other)
  Sender: FDA-Public Use
  Company Number: GB-009507513-1505GBR006794

PATIENT
  Age: 34 Year
  Sex: Female

DRUGS (1)
  1. NEXPLANON [Suspect]
     Active Substance: ETONOGESTREL
     Indication: CONTRACEPTION
     Dosage: FREQUENCY: 3 YEARS
     Route: 058
     Dates: start: 20121122, end: 20150512

REACTIONS (6)
  - Post abortion complication [Unknown]
  - Haematoma [Unknown]
  - Pregnancy with implant contraceptive [Recovered/Resolved]
  - Abortion spontaneous [Unknown]
  - Retained products of conception [Unknown]
  - Unintended pregnancy [Recovered/Resolved]

NARRATIVE: CASE EVENT DATE: 201503
